FAERS Safety Report 13752701 (Version 3)
Quarter: 2019Q1

REPORT INFORMATION
  Report Type: Spontaneous
  Country: US (occurrence: US)
  Receive Date: 20170713
  Receipt Date: 20190205
  Transmission Date: 20190417
  Serious: No
  Sender: FDA-Public Use
  Company Number: US-ACTELION-A-US2017-154660

PATIENT
  Age: 53 Year
  Sex: Female

DRUGS (16)
  1. TOPIRAMATE. [Concomitant]
     Active Substance: TOPIRAMATE
  2. OPSUMIT [Suspect]
     Active Substance: MACITENTAN
     Indication: PULMONARY ARTERIAL HYPERTENSION
     Dosage: 10 MG, QD
     Route: 048
     Dates: start: 20140328
  3. DICYCLOMINE [Concomitant]
     Active Substance: DICYCLOMINE HYDROCHLORIDE
  4. FUROSEMIDE. [Concomitant]
     Active Substance: FUROSEMIDE
  5. DEXILANT [Concomitant]
     Active Substance: DEXLANSOPRAZOLE
  6. NORCO [Concomitant]
     Active Substance: ACETAMINOPHEN\HYDROCODONE BITARTRATE
  7. LANTUS [Concomitant]
     Active Substance: INSULIN GLARGINE
  8. SIMVASTATIN. [Concomitant]
     Active Substance: SIMVASTATIN
  9. OXYBUTYNIN. [Concomitant]
     Active Substance: OXYBUTYNIN CHLORIDE
  10. LYRICA [Concomitant]
     Active Substance: PREGABALIN
  11. LIDOCAINE. [Concomitant]
     Active Substance: LIDOCAINE
  12. SEROQUEL [Concomitant]
     Active Substance: QUETIAPINE FUMARATE
  13. TAC [Concomitant]
     Active Substance: TRIAMCINOLONE ACETONIDE
  14. HYDROXYZINE [Concomitant]
     Active Substance: HYDROXYZINE HYDROCHLORIDE
  15. ZOFRAN [Concomitant]
     Active Substance: ONDANSETRON HYDROCHLORIDE
  16. GLYCOLAX [Concomitant]
     Active Substance: POLYETHYLENE GLYCOL 3350

REACTIONS (9)
  - Dyspnoea [Unknown]
  - Product dose omission [Unknown]
  - Oedema [Unknown]
  - Dry skin [Unknown]
  - Hot flush [Unknown]
  - Hypotension [Unknown]
  - Peripheral swelling [Unknown]
  - Weight decreased [Unknown]
  - Malaise [Unknown]

NARRATIVE: CASE EVENT DATE: 20170207
